FAERS Safety Report 14597408 (Version 4)
Quarter: 2018Q1

REPORT INFORMATION
  Report Type: Report from Study
  Country: None (occurrence: BE)
  Receive Date: 20180305
  Receipt Date: 20180329
  Transmission Date: 20180509
  Serious: Yes (Hospitalization, Other)
  Sender: FDA-Public Use
  Company Number: BE-ABBVIE-18K-013-2271399-00

PATIENT
  Age: 65 Year
  Sex: Male

DRUGS (9)
  1. DUODOPA [Suspect]
     Active Substance: CARBIDOPA\LEVODOPA
     Dosage: MD=3ML?CD=4.8ML/HR DURING 16HRS?ED=2.5ML?ND=2ML/HR DURING 8HRS
     Route: 050
     Dates: start: 201803
  2. SINEMET 250 [Concomitant]
     Indication: PRODUCT USED FOR UNKNOWN INDICATION
     Dosage: FORM STRENGTH: 25MG/250MG; DAILY DOSE: 1X/DAY + DURING THE NIGHT WHEN NEEDED
  3. STALEVO 150 [Concomitant]
     Indication: PRODUCT USED FOR UNKNOWN INDICATION
     Dosage: FORM STRENGTH: 150MG/37.5MG/200MG
  4. DUODOPA [Suspect]
     Active Substance: CARBIDOPA\LEVODOPA
     Dosage: MD=3ML?CD=4.8ML/HR DURING 16HRS?ED=2.5ML?ND=2ML/HR DURING 8HRS
     Route: 050
     Dates: start: 20180322, end: 201803
  5. STALEVO 100 [Concomitant]
     Indication: PRODUCT USED FOR UNKNOWN INDICATION
     Dosage: FORM STRENGTH: 100MG/25MG/200MG
  6. DUODOPA [Suspect]
     Active Substance: CARBIDOPA\LEVODOPA
     Indication: PARKINSON^S DISEASE
     Dosage: MD: 2 ML?CD: 3.5ML?ED: 2 ML
     Route: 050
     Dates: start: 20171023, end: 20171106
  7. DUODOPA [Suspect]
     Active Substance: CARBIDOPA\LEVODOPA
     Dosage: DOSES CONTINUOUSLY MONITORED ABD ADAPTED
     Route: 050
     Dates: start: 20171106, end: 20180221
  8. AZILECT [Concomitant]
     Active Substance: RASAGILINE MESYLATE
     Indication: PRODUCT USED FOR UNKNOWN INDICATION
     Route: 048
  9. DUODOPA [Suspect]
     Active Substance: CARBIDOPA\LEVODOPA
     Dosage: MD: 0 ML??CD: 4.8 ML/HR DURING 16 HRS??ED: 2.5 ML??ND: 2 ML/HR DURING 8 HRS
     Route: 050
     Dates: start: 20180221, end: 20180322

REACTIONS (9)
  - Off label use [Recovered/Resolved]
  - Device kink [Recovered/Resolved]
  - Device connection issue [Unknown]
  - Device breakage [Unknown]
  - Device occlusion [Recovered/Resolved]
  - Incorrect route of drug administration [Recovered/Resolved]
  - Pneumonia [Unknown]
  - Somnolence [Unknown]
  - Device deployment issue [Recovered/Resolved]

NARRATIVE: CASE EVENT DATE: 201802
